FAERS Safety Report 7131668-7 (Version None)
Quarter: 2010Q4

REPORT INFORMATION
  Report Type: 
  Country: None (occurrence: None)
  Receive Date: 20101201
  Receipt Date: 20101130
  Transmission Date: 20110411
  Serious: Yes (Other)
  Sender: FDA-Public Use
  Company Number: US-PFIZER INC-2010118180

PATIENT
  Sex: Female
  Weight: 77 kg

DRUGS (1)
  1. ESTRING [Suspect]
     Indication: HORMONE REPLACEMENT THERAPY
     Dosage: 2 MG, EVERY 90 DAYS
     Route: 067
     Dates: start: 20100501, end: 20100501

REACTIONS (1)
  - DIPLOPIA [None]
